FAERS Safety Report 18351704 (Version 2)
Quarter: 2020Q4

REPORT INFORMATION
  Report Type: Spontaneous
  Country: DE (occurrence: DE)
  Receive Date: 20201007
  Receipt Date: 20201221
  Transmission Date: 20210114
  Serious: Yes (Life-Threatening, Hospitalization, Other)
  Sender: FDA-Public Use
  Company Number: DE-SCIEGEN-2020SCILIT00333

PATIENT

DRUGS (2)
  1. QUETIAPINE. [Suspect]
     Active Substance: QUETIAPINE
     Dosage: IMMEDIATE RELEASE
     Route: 048
  2. QUETIAPINE. [Suspect]
     Active Substance: QUETIAPINE
     Indication: PRODUCT USED FOR UNKNOWN INDICATION
     Dosage: XR ( EXTENDED-RELEASE)
     Route: 048

REACTIONS (5)
  - Bezoar [Recovering/Resolving]
  - Suicide attempt [Unknown]
  - Somnolence [Recovered/Resolved]
  - Intentional overdose [Unknown]
  - Toxicity to various agents [Recovering/Resolving]
